FAERS Safety Report 7204959-9 (Version None)
Quarter: 2010Q4

REPORT INFORMATION
  Report Type: 
  Country: None (occurrence: None)
  Receive Date: 20101230
  Receipt Date: 20101216
  Transmission Date: 20110411
  Serious: Yes (Hospitalization)
  Sender: FDA-Public Use
  Company Number: US-JNJCH-2010028983

PATIENT
  Age: 69 Year
  Sex: Male
  Weight: 74.8 kg

DRUGS (1)
  1. MULTI-SYMPTOM ROLAIDS PLUS ANTI-GAS SOFTCHEWS FRUIT [Suspect]
     Indication: DYSPEPSIA
     Dosage: TEXT:TWO CHEWS ^OCCASIONAL^
     Route: 048
     Dates: start: 20100701, end: 20100701

REACTIONS (5)
  - FOREIGN BODY [None]
  - MALAISE [None]
  - PRODUCT CONTAMINATION PHYSICAL [None]
  - SURGERY [None]
  - VOMITING [None]
